FAERS Safety Report 19910616 (Version 1)
Quarter: 2021Q4

REPORT INFORMATION
  Report Type: Spontaneous
  Country: US (occurrence: US)
  Receive Date: 20211004
  Receipt Date: 20211004
  Transmission Date: 20220303
  Serious: No
  Sender: FDA-Public Use
  Company Number: US-DRREDDYS-SPO/USA/21/0142263

PATIENT
  Age: 18 Year
  Sex: Female

DRUGS (2)
  1. ZENATANE [Suspect]
     Active Substance: ISOTRETINOIN
     Indication: Product used for unknown indication
     Dosage: RMA ISSUE DATE: 22/MARCH/2021 6:10:17 PM, 26/MARCH/2021 11:29:27 AM, 25/MAY/2021 11:04:10 AM, 25/JUN
  2. ACCUTANE [Suspect]
     Active Substance: ISOTRETINOIN
     Indication: Product used for unknown indication
     Dosage: RMA ISSUE DATE: 25/JUNE/2021 5:06:06 PM, 28/JULY/2021 1:04:45 PM, 27/AUGUST/2021 3:29:58 PM.

REACTIONS (1)
  - Treatment noncompliance [Unknown]
